FAERS Safety Report 6834081-2 (Version None)
Quarter: 2010Q3

REPORT INFORMATION
  Report Type: 
  Country: None (occurrence: None)
  Receive Date: 20100712
  Receipt Date: 20070406
  Transmission Date: 20110219
  Serious: No
  Sender: FDA-Public Use
  Company Number: US-PFIZER INC-2007029410

PATIENT
  Sex: Female
  Weight: 50.35 kg

DRUGS (9)
  1. CHANTIX [Suspect]
     Indication: SMOKING CESSATION THERAPY
     Dates: start: 20070405
  2. VITAMINS [Concomitant]
  3. BEE POLLEN [Concomitant]
  4. ANTIHYPERTENSIVES [Concomitant]
  5. ALL OTHER THERAPEUTIC PRODUCTS [Concomitant]
  6. FLONASE [Concomitant]
  7. ANTI-ASTHMATICS [Concomitant]
  8. PRILOSEC [Concomitant]
  9. ADDERALL 10 [Concomitant]

REACTIONS (3)
  - CONSTIPATION [None]
  - HYPERHIDROSIS [None]
  - INSOMNIA [None]
